FAERS Safety Report 4476782-X (Version None)
Quarter: 2004Q4

REPORT INFORMATION
  Report Type: 
  Country: None (occurrence: None)
  Receive Date: 20041013
  Receipt Date: 20040930
  Transmission Date: 20050328
  Serious: Yes (Death)
  Sender: FDA-Public Use
  Company Number: 2004AC00413

PATIENT
  Age: 87 Year
  Sex: Male

DRUGS (1)
  1. LIDOCAINE [Suspect]
     Indication: BRONCHOSCOPY
     Dosage: 50 ML ONCE PO
     Route: 048

REACTIONS (5)
  - ANAESTHETIC COMPLICATION [None]
  - DEPRESSED LEVEL OF CONSCIOUSNESS [None]
  - MEDICATION ERROR [None]
  - OVERDOSE [None]
  - RESPIRATORY ARREST [None]
